FAERS Safety Report 7906549-9 (Version None)
Quarter: 2011Q4

REPORT INFORMATION
  Report Type: 
  Country: None (occurrence: None)
  Receive Date: 20111110
  Receipt Date: 20111102
  Transmission Date: 20120403
  Serious: Yes (Other)
  Sender: FDA-Public Use
  Company Number: DE-PFIZER INC-2011262055

PATIENT
  Age: 30 Year
  Sex: Male

DRUGS (2)
  1. REVATIO [Suspect]
     Indication: PULMONARY HYPERTENSION
     Dosage: 80 MG, 3X/DAY
  2. TRACLEER [Concomitant]
     Indication: PULMONARY HYPERTENSION

REACTIONS (4)
  - RENAL FUNCTION TEST ABNORMAL [None]
  - LIVER FUNCTION TEST ABNORMAL [None]
  - CARDIAC DISORDER [None]
  - DRUG EFFECT DECREASED [None]
